FAERS Safety Report 17480560 (Version 2)
Quarter: 2020Q2

REPORT INFORMATION
  Report Type: Report from Study
  Country: CO (occurrence: CO)
  Receive Date: 20200301
  Receipt Date: 20200402
  Transmission Date: 20200713
  Serious: Yes (Hospitalization)
  Sender: FDA-Public Use
  Company Number: NVSC2019CO001811

PATIENT
  Sex: Female

DRUGS (1)
  1. REVOLADE [Suspect]
     Active Substance: ELTROMBOPAG
     Indication: THROMBOCYTOPENIA
     Dosage: 75 MG, QD
     Route: 048
     Dates: start: 20190810

REACTIONS (5)
  - Gastric cancer [Unknown]
  - Hepatitis [Not Recovered/Not Resolved]
  - Platelet count decreased [Unknown]
  - Product dose omission [Unknown]
  - Splenomegaly [Not Recovered/Not Resolved]
